FAERS Safety Report 8393589-1 (Version None)
Quarter: 2012Q2

REPORT INFORMATION
  Report Type: 
  Country: None (occurrence: None)
  Receive Date: 20120530
  Receipt Date: 20120522
  Transmission Date: 20120825
  Serious: Yes (Hospitalization)
  Sender: FDA-Public Use
  Company Number: TW-BRISTOL-MYERS SQUIBB COMPANY-16423279

PATIENT
  Age: 69 Year
  Sex: Female
  Weight: 64 kg

DRUGS (8)
  1. FOLIC ACID [Concomitant]
     Indication: PROPHYLAXIS
     Dates: start: 20111216
  2. APREPITANT [Concomitant]
     Indication: VOMITING
     Dates: start: 20120206, end: 20120209
  3. DEXAMETHASONE [Concomitant]
     Indication: PROPHYLAXIS
     Dates: start: 20120120, end: 20120202
  4. ETOPOSIDE [Suspect]
     Indication: NON-SMALL CELL LUNG CANCER STAGE III
     Dosage: DAILY FOR 5 DAYS LAST DOSE:03FEB12 WITHDRAWN:20FEB12
     Route: 042
     Dates: start: 20111226, end: 20120203
  5. PROCHLORPERAZINE [Concomitant]
     Indication: VOMITING
     Dates: start: 20120206
  6. NAPROXEN [Concomitant]
     Indication: CHEST PAIN
     Dates: start: 20120210, end: 20120212
  7. LEVOFLOXACIN [Concomitant]
     Indication: PYREXIA
     Dates: start: 20120210, end: 20120212
  8. CISPLATIN [Suspect]
     Indication: NON-SMALL CELL LUNG CANCER STAGE III
     Dosage: DAY1 AND 8. LAST DOSE:06FEB12 WITHDRAWN:20FEB12
     Route: 042
     Dates: start: 20111226, end: 20120206

REACTIONS (5)
  - BLOOD POTASSIUM DECREASED [None]
  - CHEST PAIN [None]
  - PYREXIA [None]
  - ABDOMINAL PAIN UPPER [None]
  - NEUTROPENIA [None]
